FAERS Safety Report 11874617 (Version 3)
Quarter: 2016Q1

REPORT INFORMATION
  Report Type: Report from Study
  Country: IL (occurrence: IL)
  Receive Date: 20151229
  Receipt Date: 20160205
  Transmission Date: 20160526
  Serious: Yes (Life-Threatening, Hospitalization, Other)
  Sender: FDA-Public Use
  Company Number: PHHY2015IL169536

PATIENT
  Age: 64 Year
  Sex: Female
  Weight: 80 kg

DRUGS (9)
  1. TRAMETINIB [Suspect]
     Active Substance: TRAMETINIB
     Indication: METASTATIC MALIGNANT MELANOMA
     Dosage: 2 MG, QD
     Route: 048
     Dates: start: 20151111, end: 20151215
  2. DABRAFENIB [Suspect]
     Active Substance: DABRAFENIB
     Indication: METASTATIC MALIGNANT MELANOMA
     Dosage: 150 MG, BID
     Route: 048
     Dates: start: 20151111, end: 20151215
  3. GLUCOMIN [Concomitant]
     Active Substance: METFORMIN HYDROCHLORIDE
     Indication: PRODUCT USED FOR UNKNOWN INDICATION
     Dosage: 850 MG, QD
     Route: 048
  4. RIVOTRIL [Concomitant]
     Active Substance: CLONAZEPAM
     Indication: PRODUCT USED FOR UNKNOWN INDICATION
     Dosage: 2.5 MG, QD
     Route: 048
  5. STILNOX [Concomitant]
     Active Substance: ZOLPIDEM TARTRATE
     Indication: PRODUCT USED FOR UNKNOWN INDICATION
     Dosage: 10 MG, QD
     Route: 048
  6. LIPITOR [Concomitant]
     Active Substance: ATORVASTATIN CALCIUM
     Indication: PRODUCT USED FOR UNKNOWN INDICATION
     Dosage: 20 MG, QD
     Route: 048
  7. LOTAN PLUS [Concomitant]
     Indication: PRODUCT USED FOR UNKNOWN INDICATION
     Dosage: 1 DF, QD
     Route: 048
  8. LOSEC [Concomitant]
     Active Substance: OMEPRAZOLE
     Indication: PRODUCT USED FOR UNKNOWN INDICATION
     Dosage: 20 MG, QD HALF AN HOUR BEFORE FOOD
     Route: 048
  9. CIPRALEX [Concomitant]
     Active Substance: ESCITALOPRAM OXALATE
     Indication: PRODUCT USED FOR UNKNOWN INDICATION
     Dosage: 10 MG, QD
     Route: 048

REACTIONS (34)
  - Hyperbilirubinaemia [Unknown]
  - Hepatic enzyme increased [Unknown]
  - Systemic inflammatory response syndrome [Unknown]
  - Stomatitis [Recovered/Resolved]
  - Sepsis [Recovering/Resolving]
  - Diarrhoea [Unknown]
  - Hepatomegaly [Unknown]
  - Blood fibrinogen decreased [Recovered/Resolved]
  - Coagulopathy [Unknown]
  - Disseminated intravascular coagulation [Recovering/Resolving]
  - International normalised ratio increased [Recovered/Resolved]
  - Hypovolaemia [Unknown]
  - Leukopenia [Unknown]
  - Oral pain [Recovering/Resolving]
  - Overweight [Unknown]
  - Hypotension [Unknown]
  - Pyrexia [Recovered/Resolved]
  - Vomiting [Unknown]
  - Asthenia [Recovered/Resolved]
  - Cholestasis [Recovering/Resolving]
  - Chills [Unknown]
  - Renal failure [Recovering/Resolving]
  - Abdominal tenderness [Unknown]
  - Wheezing [Unknown]
  - Tongue haemorrhage [Unknown]
  - Oedema peripheral [Unknown]
  - Lip blister [Unknown]
  - Polyuria [Unknown]
  - Hypoalbuminaemia [Unknown]
  - Hepatic steatosis [Unknown]
  - Neutropenia [Recovered/Resolved]
  - Thrombocytopenia [Recovering/Resolving]
  - Hypoglycaemia [Unknown]
  - Rhonchi [Unknown]

NARRATIVE: CASE EVENT DATE: 20151216
